FAERS Safety Report 12542140 (Version 1)
Quarter: 2016Q3

REPORT INFORMATION
  Report Type: Spontaneous
  Country: US (occurrence: US)
  Receive Date: 20160708
  Receipt Date: 20160708
  Transmission Date: 20161109
  Serious: Yes (Death, Hospitalization)
  Sender: FDA-Public Use
  Company Number: PHHY2016US092215

PATIENT
  Age: 20 Year
  Sex: Male

DRUGS (1)
  1. CICLOSPORIN [Suspect]
     Active Substance: CYCLOSPORINE
     Indication: HEART TRANSPLANT
     Route: 065

REACTIONS (21)
  - Pyrexia [Fatal]
  - Autonomic nervous system imbalance [Fatal]
  - Vomiting [Fatal]
  - Unresponsive to stimuli [Fatal]
  - Depressed level of consciousness [Fatal]
  - Dyskinesia [Fatal]
  - West Nile viral infection [Fatal]
  - Coordination abnormal [Fatal]
  - Brain injury [Fatal]
  - Ophthalmoplegia [Fatal]
  - Malaise [Fatal]
  - Nystagmus [Fatal]
  - Nausea [Fatal]
  - Mental status changes [Fatal]
  - Confusional state [Fatal]
  - Encephalopathy [Fatal]
  - Partial seizures [Fatal]
  - Encephalitis viral [Fatal]
  - Diarrhoea [Fatal]
  - Tremor [Fatal]
  - Malassezia infection [Unknown]
